FAERS Safety Report 9905530 (Version 1)
Quarter: 2014Q1

REPORT INFORMATION
  Report Type: Spontaneous
  Country: AU (occurrence: None)
  Receive Date: 20140211
  Receipt Date: 20140211
  Transmission Date: 20141002
  Serious: Yes (Hospitalization)
  Sender: FDA-Public Use
  Company Number: 2014000036

PATIENT
  Age: 99 Year
  Sex: Male

DRUGS (2)
  1. ACEON [Suspect]
     Indication: PRODUCT USED FOR UNKNOWN INDICATION
     Route: 048
     Dates: start: 20130815, end: 20130820
  2. ROSUVASTATIN (ROSUVASTATIN) [Suspect]
     Indication: METABOLIC DISORDER
     Route: 048
     Dates: start: 20130815, end: 20130820

REACTIONS (4)
  - Vertigo [None]
  - Dizziness [None]
  - Product substitution issue [None]
  - Malaise [None]
